FAERS Safety Report 7301026-0 (Version None)
Quarter: 2011Q1

REPORT INFORMATION
  Report Type: 
  Country: None (occurrence: None)
  Receive Date: 20110218
  Receipt Date: 20110209
  Transmission Date: 20110831
  Serious: Yes (Hospitalization)
  Sender: FDA-Public Use
  Company Number: US-US-EMD SERONO, INC.-7039160

PATIENT
  Sex: Male

DRUGS (2)
  1. REBIF [Suspect]
     Indication: MULTIPLE SCLEROSIS
     Route: 058
     Dates: start: 20070401, end: 20080501
  2. ABLIIFY [Concomitant]
     Indication: COGNITIVE DISORDER
     Dates: start: 20080501

REACTIONS (2)
  - HALLUCINATION, AUDITORY [None]
  - SUICIDAL BEHAVIOUR [None]
